FAERS Safety Report 14115378 (Version 1)
Quarter: 2017Q4

REPORT INFORMATION
  Report Type: Spontaneous
  Country: CO (occurrence: CO)
  Receive Date: 20171023
  Receipt Date: 20171023
  Transmission Date: 20180321
  Serious: Yes (Hospitalization)
  Sender: FDA-Public Use
  Company Number: CO-NOVAST LABORATORIES, LTD-CO-2017NOV000066

PATIENT
  Sex: Male

DRUGS (3)
  1. INDOMETHACIN. [Suspect]
     Active Substance: INDOMETHACIN
     Indication: FOETAL EXPOSURE DURING PREGNANCY
     Dosage: 50 MG, EVERY 8 HOURS
     Route: 064
  2. PARACETAMOL [Suspect]
     Active Substance: ACETAMINOPHEN
     Indication: FOETAL EXPOSURE DURING PREGNANCY
     Dosage: 1 G, EVERY 8 HOURS
     Route: 064
  3. DIPYRONE [Suspect]
     Active Substance: DIPYRONE
     Indication: FOETAL EXPOSURE DURING PREGNANCY
     Dosage: 1 G, EVERY 8 HOURS
     Route: 064

REACTIONS (5)
  - Ductus arteriosus premature closure [Unknown]
  - Foetal exposure during pregnancy [Recovered/Resolved]
  - Pulmonary hypertension [Recovered/Resolved]
  - Right ventricular failure [Recovered/Resolved]
  - Tricuspid valve incompetence [Unknown]
